FAERS Safety Report 16197450 (Version 1)
Quarter: 2019Q2

REPORT INFORMATION
  Report Type: Spontaneous
  Country: US (occurrence: US)
  Receive Date: 20190412
  Receipt Date: 20190412
  Transmission Date: 20190711
  Serious: No
  Sender: FDA-Public Use
  Company Number: None

PATIENT
  Age: 29 Month
  Sex: Female
  Weight: 11.7 kg

DRUGS (1)
  1. NEUTROGENA WET SKIN KIDS BEACH AND POOL SUNSCREEN BROAD SPECTRUM SPF70 PLUS [Suspect]
     Active Substance: AVOBENZONE\HOMOSALATE\OCTISALATE\OCTOCRYLENE\OXYBENZONE
     Indication: PROPHYLAXIS AGAINST SOLAR RADIATION
     Dosage: ?          QUANTITY:1 STICK;?
     Route: 061
     Dates: start: 20190409, end: 20190411

REACTIONS (1)
  - Rash [None]

NARRATIVE: CASE EVENT DATE: 20190410
